FAERS Safety Report 8756638 (Version 1)
Quarter: 2012Q4

REPORT INFORMATION
  Report Type: 
  Country: BR (occurrence: BR)
  Receive Date: 20120828
  Receipt Date: 20120828
  Transmission Date: 20130627
  Serious: Yes (Other)
  Sender: FDA-Public Use
  Company Number: BR-JNJFOC-20120812234

PATIENT
  Age: 41 Year
  Sex: Female

DRUGS (2)
  1. REMICADE [Suspect]
     Indication: PRODUCT USED FOR UNKNOWN INDICATION
     Route: 042
  2. AMITRIPTYLINE [Concomitant]
     Route: 065

REACTIONS (4)
  - Gangrene [Unknown]
  - Alopecia [Unknown]
  - Pruritus [Unknown]
  - Skin exfoliation [Unknown]
